FAERS Safety Report 15049885 (Version 1)
Quarter: 2018Q2

REPORT INFORMATION
  Report Type: Report from Study
  Country: MX (occurrence: MX)
  Receive Date: 20180622
  Receipt Date: 20180622
  Transmission Date: 20180711
  Serious: Yes (Other)
  Sender: FDA-Public Use
  Company Number: MX-ROCHE-2143264

PATIENT
  Age: 76 Year
  Sex: Female
  Weight: 57 kg

DRUGS (5)
  1. CETUXIMAB. [Concomitant]
     Active Substance: CETUXIMAB
     Dosage: CYCLE DURATION IN DAYS: 14 DAYS. 12 CYCLES ADMINISTERED. CYCLES PLANNED: UNTIL PROGRESSION.
     Route: 042
  2. XELODA [Suspect]
     Active Substance: CAPECITABINE
     Indication: COLORECTAL CANCER
     Route: 065
  3. OXALIPLATIN. [Suspect]
     Active Substance: OXALIPLATIN
     Indication: COLORECTAL CANCER
     Route: 065
  4. IRINOTECAN [Concomitant]
     Active Substance: IRINOTECAN
     Dosage: CYCLE DURATION IN DAYS: 14 DAYS, 12 CYCLES ADMINISTERED, CYCLES PLANNED: UNTIL PROGRESSION.
     Route: 042
  5. CAPECITABINE. [Concomitant]
     Active Substance: CAPECITABINE
     Dosage: CYCLE DURATION IN DAYS: 14 DAYS. 12 CYCLES ADMINISTERED. CYCLES PLANNED: UNTIL PROGRESSION.
     Route: 048

REACTIONS (3)
  - Metastases to lung [Unknown]
  - Metastases to peritoneum [Unknown]
  - Drug ineffective [Unknown]
